FAERS Safety Report 5698045-7 (Version None)
Quarter: 2008Q2

REPORT INFORMATION
  Report Type: 
  Country: None (occurrence: None)
  Receive Date: 20080404
  Receipt Date: 20080404
  Transmission Date: 20081010
  Serious: Yes (Death)
  Sender: FDA-Public Use
  Company Number: None

PATIENT
  Sex: Male

DRUGS (2)
  1. VANCOMYCIN [Suspect]
     Indication: ANTIBIOTIC PROPHYLAXIS
     Dosage: 1 GRAM ONCE IV
     Route: 042
     Dates: start: 20080317, end: 20080317
  2. VANCOMYCIN [Suspect]
     Indication: PREOPERATIVE CARE
     Dosage: 1 GRAM ONCE IV
     Route: 042
     Dates: start: 20080317, end: 20080317

REACTIONS (2)
  - CARDIAC ARREST [None]
  - DYSPNOEA [None]
